FAERS Safety Report 19490455 (Version 2)
Quarter: 2023Q2

REPORT INFORMATION
  Report Type: Report from Study
  Country: US (occurrence: US)
  Receive Date: 20210705
  Receipt Date: 20230501
  Transmission Date: 20230721
  Serious: Yes (Death, Other)
  Sender: FDA-Public Use
  Company Number: US-SA-2021SA215072

PATIENT
  Age: 44 Year
  Sex: Female

DRUGS (3)
  1. DUPILUMAB [Suspect]
     Active Substance: DUPILUMAB
     Indication: Dermatitis atopic
     Dosage: UNK
  2. METHOTREXATE [Suspect]
     Active Substance: METHOTREXATE
     Indication: Dermatitis atopic
     Dosage: UNK
  3. CORTICOSTEROID NOS [Concomitant]
     Active Substance: CORTICOSTEROID NOS
     Indication: Dermatitis atopic
     Dosage: UNK
     Route: 061

REACTIONS (6)
  - Cutaneous T-cell lymphoma stage IV [Fatal]
  - Dermatitis exfoliative generalised [Fatal]
  - Lymphadenopathy [Fatal]
  - Abscess [Fatal]
  - Lymphocytic infiltration [Fatal]
  - Off label use [Unknown]
